FAERS Safety Report 4727101-2 (Version None)
Quarter: 2005Q3

REPORT INFORMATION
  Report Type: 
  Country: None (occurrence: None)
  Receive Date: 20050726
  Receipt Date: 20050726
  Transmission Date: 20060218
  Serious: Yes (Hospitalization, Other)
  Sender: FDA-Public Use
  Company Number: None

PATIENT
  Sex: Male
  Weight: 97.7 kg

DRUGS (2)
  1. TEMODAR [Suspect]
     Indication: ASTROCYTOMA
     Dosage: SEE IMAGE
     Dates: start: 20050721
  2. RADIOATHERAPY [Suspect]
     Dosage: SEE IMAGE
     Dates: start: 20050721

REACTIONS (4)
  - HEADACHE [None]
  - NAUSEA [None]
  - PARTIAL SEIZURES [None]
  - VOMITING [None]
